FAERS Safety Report 14116497 (Version 1)
Quarter: 2017Q4

REPORT INFORMATION
  Report Type: Spontaneous
  Country: US (occurrence: US)
  Receive Date: 20171023
  Receipt Date: 20171023
  Transmission Date: 20180321
  Serious: Yes (Other)
  Sender: FDA-Public Use
  Company Number: US-NAPPMUNDI-USA-2017-0139478

PATIENT
  Sex: Male

DRUGS (1)
  1. OXYCONTIN [Suspect]
     Active Substance: OXYCODONE HYDROCHLORIDE
     Indication: BACK PAIN
     Dosage: UNK
     Route: 048

REACTIONS (8)
  - Drug withdrawal syndrome [Unknown]
  - Unevaluable event [Unknown]
  - Drug dependence [Recovered/Resolved]
  - Cognitive disorder [Unknown]
  - Motor dysfunction [Unknown]
  - Pain [Unknown]
  - Malaise [Unknown]
  - Nausea [Unknown]
